FAERS Safety Report 5867896-8 (Version None)
Quarter: 2008Q3

REPORT INFORMATION
  Report Type: 
  Country: None (occurrence: None)
  Receive Date: 20080902
  Receipt Date: 20080827
  Transmission Date: 20090109
  Serious: Yes (Hospitalization)
  Sender: FDA-Public Use
  Company Number: JP-BOEHRINGER INGELHEIM GMBH, GERMANY-2008-DE-04956GD

PATIENT
  Sex: Male

DRUGS (4)
  1. NEVIRAPINE [Suspect]
     Indication: HIV INFECTION
  2. EMTRICITABINE [Suspect]
     Indication: HIV INFECTION
  3. HALOPERIDOL [Suspect]
     Indication: INSOMNIA
     Route: 030
  4. ZOLPIDEM [Concomitant]

REACTIONS (11)
  - CYTOMEGALOVIRUS INFECTION [None]
  - DECREASED APPETITE [None]
  - DELUSION [None]
  - DRUG RESISTANCE [None]
  - DYSTONIA [None]
  - EYE DISORDER [None]
  - HALLUCINATION [None]
  - INSOMNIA [None]
  - IRRITABILITY [None]
  - PSYCHOTIC DISORDER [None]
  - TORTICOLLIS [None]
